FAERS Safety Report 10624781 (Version 1)
Quarter: 2014Q4

REPORT INFORMATION
  Report Type: Spontaneous
  Country: US (occurrence: US)
  Receive Date: 20141204
  Receipt Date: 20141204
  Transmission Date: 20150529
  Serious: Yes (Hospitalization, Other)
  Sender: FDA-Public Use
  Company Number: US-ASTRAZENECA-2014SE91153

PATIENT
  Age: 75 Year
  Sex: Male
  Weight: 87.1 kg

DRUGS (12)
  1. NAMENDA [Suspect]
     Active Substance: MEMANTINE HYDROCHLORIDE
     Indication: AMNESIA
     Route: 065
     Dates: start: 201109, end: 2011
  2. PLETAL [Concomitant]
     Active Substance: CILOSTAZOL
     Indication: ATRIAL FIBRILLATION
     Dates: start: 200308
  3. ARICEPT [Suspect]
     Active Substance: DONEPEZIL HYDROCHLORIDE
     Indication: AMNESIA
     Route: 065
     Dates: start: 20100903
  4. AZILECT [Suspect]
     Active Substance: RASAGILINE MESYLATE
     Indication: TREMOR
     Route: 065
     Dates: start: 201209, end: 201210
  5. CRESTOR [Suspect]
     Active Substance: ROSUVASTATIN CALCIUM
     Route: 048
     Dates: start: 201302, end: 20140407
  6. AMIODARONE [Suspect]
     Active Substance: AMIODARONE
     Indication: ATRIAL FIBRILLATION
     Route: 048
     Dates: start: 200301
  7. AZILECT [Suspect]
     Active Substance: RASAGILINE MESYLATE
     Indication: TREMOR
     Route: 065
     Dates: start: 20131216
  8. AMIODARONE [Suspect]
     Active Substance: AMIODARONE
     Indication: ATRIAL FIBRILLATION
     Route: 048
     Dates: start: 201302
  9. AMIODARONE [Suspect]
     Active Substance: AMIODARONE
     Indication: ATRIAL FIBRILLATION
     Route: 048
  10. CRESTOR [Suspect]
     Active Substance: ROSUVASTATIN CALCIUM
     Route: 048
     Dates: start: 200308
  11. ARICEPT [Suspect]
     Active Substance: DONEPEZIL HYDROCHLORIDE
     Indication: AMNESIA
     Route: 065
     Dates: start: 200812
  12. COUMADIN [Suspect]
     Active Substance: WARFARIN SODIUM
     Route: 065
     Dates: start: 200301

REACTIONS (21)
  - Feeling abnormal [Recovered/Resolved]
  - Liver disorder [Unknown]
  - Cerebrovascular accident [Unknown]
  - Rectal haemorrhage [Recovered/Resolved]
  - Influenza like illness [Unknown]
  - Tremor [Recovered/Resolved]
  - Aspartate aminotransferase increased [Unknown]
  - Alanine aminotransferase increased [Unknown]
  - Deafness [Unknown]
  - Hypertension [Not Recovered/Not Resolved]
  - Transient ischaemic attack [Unknown]
  - Euphoric mood [Unknown]
  - Chest pain [Recovered/Resolved]
  - Thyroid disorder [Unknown]
  - Fatigue [Not Recovered/Not Resolved]
  - Dizziness [Recovered/Resolved]
  - Abdominal discomfort [Recovered/Resolved]
  - Loss of consciousness [Unknown]
  - Dyspnoea [Not Recovered/Not Resolved]
  - Deafness unilateral [Recovered/Resolved]
  - Hypersomnia [Not Recovered/Not Resolved]

NARRATIVE: CASE EVENT DATE: 2003
